FAERS Safety Report 10548551 (Version 1)
Quarter: 2014Q4

REPORT INFORMATION
  Report Type: Spontaneous
  Country: US (occurrence: None)
  Receive Date: 20141024
  Receipt Date: 20141024
  Transmission Date: 20150529
  Serious: Yes (Hospitalization)
  Sender: FDA-Public Use
  Company Number: INT_00490_2014

PATIENT

DRUGS (3)
  1. CISPLATIN. [Suspect]
     Active Substance: CISPLATIN
     Indication: NEOPLASM
     Dosage: [ON DAY 1 OF 21 DAY CYCLE, 2 CYCLES]
     Route: 042
  2. GEMCITABINE [Suspect]
     Active Substance: GEMCITABINE\GEMCITABINE HYDROCHLORIDE
     Indication: NEOPLASM
     Dosage: [ON DAY 1 AND DAY 8 OF A 21 DAY CYCLE, 2 CYCLES]
     Route: 042
  3. DOVITINIB [Suspect]
     Active Substance: DOVITINIB LACTATE
     Indication: NEOPLASM
     Dosage: [CYCLE 1] ORAL
     Route: 048

REACTIONS (3)
  - Decreased appetite [None]
  - Fatigue [None]
  - Deep vein thrombosis [None]
